FAERS Safety Report 6783681-7 (Version None)
Quarter: 2010Q2

REPORT INFORMATION
  Report Type: 
  Country: None (occurrence: None)
  Receive Date: 20100622
  Receipt Date: 20100615
  Transmission Date: 20101027
  Serious: Yes (Death, Hospitalization)
  Sender: FDA-Public Use
  Company Number: DE-ROCHE-695240

PATIENT
  Sex: Male
  Weight: 92 kg

DRUGS (6)
  1. BEVACIZUMAB [Suspect]
     Route: 042
     Dates: start: 20091102, end: 20100308
  2. OXALIPLATIN [Concomitant]
     Route: 042
     Dates: start: 20091102, end: 20100308
  3. FLUOROURACIL [Concomitant]
     Dosage: 24H INFUSION
     Route: 042
     Dates: start: 20091108, end: 20100307
  4. FLUOROURACIL [Concomitant]
     Route: 040
     Dates: start: 20091102, end: 20100307
  5. NATRIUM FOLINAT [Concomitant]
     Route: 042
     Dates: start: 20091102, end: 20100308
  6. OXALIPLATIN [Concomitant]
     Dates: start: 20091102

REACTIONS (4)
  - LUNG INFILTRATION [None]
  - MULTI-ORGAN FAILURE [None]
  - SEPSIS [None]
  - VENOUS THROMBOSIS LIMB [None]
